FAERS Safety Report 8924376 (Version 1)
Quarter: 2012Q4

REPORT INFORMATION
  Report Type: Spontaneous
  Country: US (occurrence: None)
  Receive Date: 20121121
  Receipt Date: 20121121
  Transmission Date: 20130627
  Serious: Yes (Hospitalization)
  Sender: FDA-Public Use
  Company Number: None

PATIENT
  Age: 62 Year
  Sex: Female
  Weight: 88.6 kg

DRUGS (1)
  1. DAPTOMYCIN [Suspect]
     Dosage: 500 MG EVERY DAY IV
     Route: 042
     Dates: start: 20120424, end: 20120519

REACTIONS (10)
  - Hypotension [None]
  - Fluid overload [None]
  - Adrenal insufficiency [None]
  - Urinary tract infection [None]
  - Candidiasis [None]
  - Supraventricular tachycardia [None]
  - Eosinophilic pneumonia [None]
  - Nausea [None]
  - Retching [None]
  - Vomiting [None]
